FAERS Safety Report 22249358 (Version 1)
Quarter: 2023Q2

REPORT INFORMATION
  Report Type: Spontaneous
  Country: FR (occurrence: FR)
  Receive Date: 20230425
  Receipt Date: 20230425
  Transmission Date: 20230721
  Serious: Yes (Hospitalization)
  Sender: FDA-Public Use
  Company Number: None

PATIENT
  Age: 64 Year
  Sex: Male

DRUGS (6)
  1. TOPIRAMATE [Interacting]
     Active Substance: TOPIRAMATE
     Indication: Post-traumatic epilepsy
  2. TERALITHE [Interacting]
     Active Substance: LITHIUM CARBONATE
     Indication: Schizophrenia
     Dosage: STRENGTH: 400 MG, PROLONGED-RELEASE SCORED TABLET
     Dates: start: 2023, end: 20230228
  3. VALPROATE SODIUM [Suspect]
     Active Substance: VALPROATE SODIUM
     Indication: Post-traumatic epilepsy
     Dosage: STRENGTH: 500 MG, PROLONGED-RELEASE SCORED FILM-COATED TABLET
  4. AMISULPRIDE [Concomitant]
     Active Substance: AMISULPRIDE
  5. DIAZEPAM [Concomitant]
     Active Substance: DIAZEPAM
  6. CYAMEMAZINE [Concomitant]
     Active Substance: CYAMEMAZINE

REACTIONS (6)
  - Apraxia [Recovered/Resolved]
  - Dysarthria [Recovered/Resolved]
  - Somnolence [Recovered/Resolved]
  - Hypothyroidism [Unknown]
  - Dehydration [Recovered/Resolved]
  - Antipsychotic drug level increased [Recovered/Resolved]

NARRATIVE: CASE EVENT DATE: 20230225
